FAERS Safety Report 8574127-7 (Version None)
Quarter: 2012Q3

REPORT INFORMATION
  Report Type: 
  Country: None (occurrence: None)
  Receive Date: 20120806
  Receipt Date: 20120801
  Transmission Date: 20120928
  Serious: Yes (Other)
  Sender: FDA-Public Use
  Company Number: PHHY2012AU066042

PATIENT
  Sex: Male

DRUGS (1)
  1. ATORVASTATIN [Suspect]

REACTIONS (3)
  - MALAISE [None]
  - ANAL HAEMORRHAGE [None]
  - RENAL PAIN [None]
